FAERS Safety Report 5703679-7 (Version None)
Quarter: 2008Q2

REPORT INFORMATION
  Report Type: 
  Country: None (occurrence: None)
  Receive Date: 20080413
  Receipt Date: 20080404
  Transmission Date: 20081010
  Serious: Yes (Other)
  Sender: FDA-Public Use
  Company Number: PHBS2007IE20295

PATIENT
  Age: 71 Year
  Sex: Male
  Weight: 78 kg

DRUGS (1)
  1. CLOZARIL [Suspect]
     Dosage: 100 MG, ONCE/SINGLE

REACTIONS (2)
  - MEDICATION ERROR [None]
  - SOMNOLENCE [None]
